FAERS Safety Report 12210869 (Version 1)
Quarter: 2016Q1

REPORT INFORMATION
  Report Type: Spontaneous
  Country: US (occurrence: None)
  Receive Date: 20160324
  Receipt Date: 20160324
  Transmission Date: 20160526
  Serious: Yes (Other)
  Sender: FDA-Public Use
  Company Number: None

PATIENT
  Age: 36 Year
  Sex: Male
  Weight: 117.03 kg

DRUGS (14)
  1. VENTOLIN HFA [Concomitant]
     Active Substance: ALBUTEROL SULFATE
  2. RANITIDINE [Concomitant]
     Active Substance: RANITIDINE\RANITIDINE HYDROCHLORIDE
  3. NORCO [Concomitant]
     Active Substance: ACETAMINOPHEN\HYDROCODONE BITARTRATE
  4. METFORMIN [Concomitant]
     Active Substance: METFORMIN HYDROCHLORIDE
  5. FLAXSEED [Concomitant]
     Active Substance: FLAX SEED
  6. TRAMADOL. [Concomitant]
     Active Substance: TRAMADOL
  7. BYETTA [Concomitant]
     Active Substance: EXENATIDE
  8. METHOCARBAMOL. [Concomitant]
     Active Substance: METHOCARBAMOL
  9. FREESTYLE LITE STRIPS [Concomitant]
  10. GENERIC CYMBALTA 30 MG [Suspect]
     Active Substance: DULOXETINE HYDROCHLORIDE
     Indication: SPINAL OSTEOARTHRITIS
  11. CIALIS [Concomitant]
     Active Substance: TADALAFIL
  12. VITAMIN A [Concomitant]
     Active Substance: VITAMIN A
  13. VITAMIN B12 [Concomitant]
     Active Substance: CYANOCOBALAMIN
  14. GENERIC CYMBALTA 30 MG [Suspect]
     Active Substance: DULOXETINE HYDROCHLORIDE
     Indication: PAIN

REACTIONS (3)
  - Product substitution issue [None]
  - Hepatic enzyme increased [None]
  - Abdominal pain upper [None]

NARRATIVE: CASE EVENT DATE: 20141106
